FAERS Safety Report 7079242-5 (Version None)
Quarter: 2010Q4

REPORT INFORMATION
  Report Type: 
  Country: None (occurrence: None)
  Receive Date: 20101102
  Receipt Date: 20101026
  Transmission Date: 20110411
  Serious: Yes (Death, Hospitalization)
  Sender: FDA-Public Use
  Company Number: US-GILEAD-2010-0032964

PATIENT
  Sex: Female

DRUGS (2)
  1. LETAIRIS [Suspect]
     Indication: PULMONARY ARTERIAL HYPERTENSION
     Route: 048
     Dates: start: 20100901
  2. LETAIRIS [Suspect]
     Route: 048
     Dates: start: 20080801, end: 20100901

REACTIONS (1)
  - RIGHT VENTRICULAR FAILURE [None]
